FAERS Safety Report 17975624 (Version 1)
Quarter: 2020Q3

REPORT INFORMATION
  Report Type: Report from Study
  Country: GB (occurrence: GB)
  Receive Date: 20200702
  Receipt Date: 20200702
  Transmission Date: 20201103
  Serious: Yes (Death, Other)
  Sender: FDA-Public Use
  Company Number: GB-GILEAD-2020-0463335

PATIENT
  Age: 59 Year
  Sex: Male

DRUGS (3)
  1. LAMOTRIGINE. [Concomitant]
     Active Substance: LAMOTRIGINE
     Indication: EPILEPSY
  2. AXICABTAGENE CILOLEUCEL [Suspect]
     Active Substance: AXICABTAGENE CILOLEUCEL
     Indication: B-CELL LYMPHOMA RECURRENT
     Dosage: UNK
     Route: 065
     Dates: start: 2019, end: 2019
  3. TISAGENLECLEUCEL?T [Concomitant]
     Active Substance: TISAGENLECLEUCEL

REACTIONS (6)
  - Cytokine release syndrome [Unknown]
  - Respiratory failure [Fatal]
  - Seizure [Unknown]
  - Pneumonia [Fatal]
  - Sepsis [Fatal]
  - Immune effector cell-associated neurotoxicity syndrome [Recovered/Resolved]

NARRATIVE: CASE EVENT DATE: 2019
